FAERS Safety Report 25105014 (Version 1)
Quarter: 2025Q1

REPORT INFORMATION
  Report Type: Report from Study
  Country: AR (occurrence: AR)
  Receive Date: 20250321
  Receipt Date: 20250321
  Transmission Date: 20250409
  Serious: Yes (Death, Other)
  Sender: UCB
  Company Number: AR-UCBSA-2025004085

PATIENT
  Age: 83 Year
  Sex: Female

DRUGS (2)
  1. ROTIGOTINE [Suspect]
     Active Substance: ROTIGOTINE
     Indication: Parkinson^s disease
     Dosage: 2 MILLIGRAM, ONCE DAILY (QD)
     Route: 062
     Dates: start: 20250103, end: 2025
  2. ROTIGOTINE [Suspect]
     Active Substance: ROTIGOTINE
     Dosage: 4 MILLIGRAM, ONCE DAILY (QD)
     Route: 062
     Dates: start: 2024, end: 20250314

REACTIONS (5)
  - Cardio-respiratory arrest [Fatal]
  - General physical health deterioration [Unknown]
  - Dysphagia [Unknown]
  - Speech disorder [Recovered/Resolved]
  - Muscle rigidity [Recovered/Resolved]

NARRATIVE: CASE EVENT DATE: 20250113
